FAERS Safety Report 22311937 (Version 1)
Quarter: 2023Q2

REPORT INFORMATION
  Report Type: Spontaneous
  Country: US (occurrence: US)
  Receive Date: 20230512
  Receipt Date: 20230512
  Transmission Date: 20230721
  Serious: Yes (Hospitalization)
  Sender: FDA-Public Use
  Company Number: US-CADILA HEALTHCARE LIMITED-US-ZYDUS-092005

PATIENT

DRUGS (1)
  1. BOSENTAN [Suspect]
     Active Substance: BOSENTAN
     Indication: Product used for unknown indication
     Dosage: , BID
     Route: 048

REACTIONS (7)
  - Fall [Recovered/Resolved]
  - Rib fracture [Recovering/Resolving]
  - Shoulder fracture [Recovering/Resolving]
  - Clavicle fracture [Recovering/Resolving]
  - Pelvic fracture [Recovering/Resolving]
  - Concussion [Recovering/Resolving]
  - Dysarthria [Recovering/Resolving]

NARRATIVE: CASE EVENT DATE: 20230323
